FAERS Safety Report 7763778-5 (Version None)
Quarter: 2011Q3

REPORT INFORMATION
  Report Type: 
  Country: None (occurrence: None)
  Receive Date: 20110921
  Receipt Date: 20110915
  Transmission Date: 20111222
  Serious: Yes (Death, Life-Threatening, Hospitalization)
  Sender: FDA-Public Use
  Company Number: KR-BAYER-2011-014615

PATIENT
  Age: 53 Year
  Sex: Male
  Weight: 59 kg

DRUGS (84)
  1. MEK INHIBITOR (DIHYDROXYPROP-DIFLU-METHOXYPHEN-CYCLOPROPA-SULFAMI) [Suspect]
     Dosage: 50 MG, BID
     Route: 048
     Dates: start: 20110208, end: 20110211
  2. MEK INHIBITOR (DIHYDROXYPROP-DIFLU-METHOXYPHEN-CYCLOPROPA-SULFAMI) [Suspect]
     Dosage: 30 MG, BID
     Route: 048
     Dates: start: 20110525, end: 20110614
  3. SORAFENIB (RAF KINASE INHIBITOR) [Suspect]
     Dosage: 400 MG, QD
     Route: 048
     Dates: start: 20110212, end: 20110212
  4. SORAFENIB (RAF KINASE INHIBITOR) [Suspect]
     Dosage: 400 MG, QD
     Dates: start: 20110221, end: 20110227
  5. SORAFENIB (RAF KINASE INHIBITOR) [Suspect]
     Dosage: 400 MG, QD
     Route: 048
     Dates: start: 20110321, end: 20110414
  6. SORAFENIB (RAF KINASE INHIBITOR) [Suspect]
     Dosage: 400 MG, QOD
     Route: 048
     Dates: start: 20110706, end: 20110724
  7. CARVEDILOL [Concomitant]
     Dosage: 25 MG, QD
     Route: 048
     Dates: start: 20110502, end: 20110823
  8. NEURONTIN [Concomitant]
     Indication: PAIN
     Dosage: 300 MG, TID
     Route: 048
     Dates: start: 20110217, end: 20110428
  9. CELEBREX [Concomitant]
     Indication: PERIPHERAL SENSORY NEUROPATHY
     Dosage: 200 MG, BID
     Route: 048
     Dates: start: 20101229, end: 20110226
  10. ACETYLCYSTEINE [Concomitant]
     Dosage: 600 MG, BID
     Route: 042
     Dates: start: 20110214, end: 20110216
  11. PHENIRAMINE [Concomitant]
     Indication: PROPHYLAXIS
     Dosage: 4 MG, QD
     Route: 042
     Dates: start: 20110215, end: 20110215
  12. PHENIRAMINE [Concomitant]
     Dosage: 4 MG, QD
     Route: 042
     Dates: start: 20110216, end: 20110216
  13. PHENIRAMINE [Concomitant]
     Dosage: 4 MG, UNK
     Route: 042
     Dates: start: 20110725, end: 20110725
  14. LASIX [Concomitant]
     Dosage: 20 MG, QD
     Route: 042
     Dates: start: 20110216, end: 20110216
  15. CLINIMIX N9G15E [Concomitant]
     Dosage: 1500 ML, QD
     Route: 042
     Dates: start: 20110725, end: 20110803
  16. MEK INHIBITOR (DIHYDROXYPROP-DIFLU-METHOXYPHEN-CYCLOPROPA-SULFAMI) [Suspect]
     Dosage: 30 MG, BID
     Route: 048
     Dates: start: 20110510, end: 20110525
  17. MEK INHIBITOR (DIHYDROXYPROP-DIFLU-METHOXYPHEN-CYCLOPROPA-SULFAMI) [Suspect]
     Dosage: 30 MG, BID
     Route: 048
     Dates: start: 20110706, end: 20110724
  18. SORAFENIB (RAF KINASE INHIBITOR) [Suspect]
     Dosage: 400 MG, QD
     Dates: start: 20110314, end: 20110320
  19. LOPERAMIDE [Concomitant]
     Indication: DIARRHOEA
     Dosage: 2 MG, PRN
     Route: 048
     Dates: start: 20110207, end: 20110210
  20. ADELAVIN [Concomitant]
     Dosage: 20 ML, QD
     Route: 042
     Dates: start: 20110725, end: 20110801
  21. URSA [Concomitant]
     Dosage: 100 MG, TID
     Route: 048
     Dates: start: 20110217, end: 20110228
  22. MEK INHIBITOR (DIHYDROXYPROP-DIFLU-METHOXYPHEN-CYCLOPROPA-SULFAMI) [Suspect]
     Dosage: 50 MG, QD
     Route: 048
     Dates: start: 20110212, end: 20110212
  23. MEK INHIBITOR (DIHYDROXYPROP-DIFLU-METHOXYPHEN-CYCLOPROPA-SULFAMI) [Suspect]
     Dosage: 30 MG, QD
     Route: 048
     Dates: start: 20110307, end: 20110307
  24. MEK INHIBITOR (DIHYDROXYPROP-DIFLU-METHOXYPHEN-CYCLOPROPA-SULFAMI) [Suspect]
     Dosage: 30 MG, BID
     Route: 048
     Dates: start: 20110321, end: 20110414
  25. SORAFENIB (RAF KINASE INHIBITOR) [Suspect]
     Indication: HEPATIC NEOPLASM MALIGNANT
     Dosage: 400 MG, QD
     Route: 048
     Dates: start: 20110207, end: 20110207
  26. ADALAT [Concomitant]
     Indication: HYPERTENSION
     Dosage: 60 MG, QD
     Route: 048
     Dates: start: 20100605, end: 20110428
  27. ADELAVIN [Concomitant]
     Indication: SUPPLEMENTATION THERAPY
     Dosage: 2 ML, QD
     Route: 042
     Dates: start: 20110214, end: 20110216
  28. LANSTON [Concomitant]
     Indication: GASTROOESOPHAGEAL REFLUX DISEASE
     Dosage: 30 MG, QD
     Dates: start: 20100614, end: 20110213
  29. TC-99M-RBC [Concomitant]
     Dosage: 1 BOTTLE QD
     Route: 042
     Dates: start: 20110801, end: 20110801
  30. COMBIFLEX [Concomitant]
     Dosage: 1440 ML, QD
     Route: 042
     Dates: start: 20110430, end: 20110502
  31. M.V.I. [Concomitant]
     Dosage: 5 ML, QD
     Route: 042
     Dates: start: 20110502, end: 20110503
  32. HYDROMORPHONE HCL [Concomitant]
     Indication: PERIPHERAL SENSORY NEUROPATHY
     Dosage: 4 MG, TID
     Route: 048
     Dates: start: 20110706, end: 20110823
  33. MEK INHIBITOR (DIHYDROXYPROP-DIFLU-METHOXYPHEN-CYCLOPROPA-SULFAMI) [Suspect]
     Dosage: 30 MG, QD
     Route: 048
     Dates: start: 20110221, end: 20110227
  34. SORAFENIB (RAF KINASE INHIBITOR) [Suspect]
     Dosage: 400 MG, QD
     Route: 048
     Dates: start: 20110415, end: 20110427
  35. NEURONTIN [Concomitant]
     Dosage: 300 MG, TID
     Dates: start: 20110502, end: 20110823
  36. PHENIRAMINE [Concomitant]
     Dosage: 1000 MG, UNK
     Route: 042
     Dates: start: 20110216, end: 20110216
  37. CLINIMIX N9G15E [Concomitant]
     Indication: MEDICAL DIET
     Dosage: 1500 ML, QD
     Route: 042
     Dates: start: 20110214, end: 20110216
  38. KABIVEN [Concomitant]
     Indication: MEDICAL DIET
     Dosage: 1440 ML, QD
     Route: 042
     Dates: start: 20110216, end: 20110217
  39. ULTRAVIST 150 [Concomitant]
     Indication: COMPUTERISED TOMOGRAM
     Dosage: 100 ML, QD
     Route: 042
     Dates: start: 20110201, end: 20110201
  40. ULTRAVIST 150 [Concomitant]
     Dosage: 100 ML, QD
     Route: 042
     Dates: start: 20110518, end: 20110518
  41. TC-99M-RBC [Concomitant]
     Dosage: 1 BOTTLE QD
     Route: 042
     Dates: start: 20110201, end: 20110201
  42. LIVACT [AMINO ACIDS NOS] [Concomitant]
     Dosage: 4.15 MG, TID
     Route: 042
     Dates: start: 20101115, end: 20110131
  43. MEK INHIBITOR (DIHYDROXYPROP-DIFLU-METHOXYPHEN-CYCLOPROPA-SULFAMI) [Suspect]
     Indication: HEPATIC NEOPLASM MALIGNANT
     Dosage: 50 MG, QD
     Route: 048
     Dates: start: 20110207, end: 20110207
  44. MEK INHIBITOR (DIHYDROXYPROP-DIFLU-METHOXYPHEN-CYCLOPROPA-SULFAMI) [Suspect]
     Dosage: 30 MG, BID
     Route: 048
     Dates: start: 20110415, end: 20110427
  45. MEK INHIBITOR (DIHYDROXYPROP-DIFLU-METHOXYPHEN-CYCLOPROPA-SULFAMI) [Suspect]
     Dosage: 30 MG, QD
     Route: 048
     Dates: start: 20110509, end: 20110509
  46. SORAFENIB (RAF KINASE INHIBITOR) [Suspect]
     Dosage: 600 MG, QD
     Route: 048
     Dates: start: 20110208, end: 20110211
  47. SORAFENIB (RAF KINASE INHIBITOR) [Suspect]
     Dosage: 400 MG, QOD
     Route: 048
     Dates: start: 20110510, end: 20110525
  48. LANSOPRAZOLE [Concomitant]
     Dosage: 15 ML, QD
     Route: 048
     Dates: start: 20110217, end: 20110428
  49. PHENIRAMINE [Concomitant]
     Dosage: 1440 ML, UNK
     Dates: start: 20110216, end: 20110217
  50. PHENIRAMINE [Concomitant]
     Dosage: 4 MG, QD
     Route: 042
     Dates: start: 20110429, end: 20110430
  51. ULTRAVIST 150 [Concomitant]
     Dosage: 100 ML, QD
     Route: 042
     Dates: start: 20110314, end: 20110314
  52. ULTRAVIST 150 [Concomitant]
     Dosage: 100 ML, QD
     Route: 042
     Dates: start: 20110719, end: 20110719
  53. L-CARNITINE [Concomitant]
     Indication: HEPATITIS
     Dosage: 1 DF, TID
     Route: 048
     Dates: start: 20110217, end: 20110428
  54. URSA [Concomitant]
     Dosage: 100 MG, TID
     Route: 048
     Dates: start: 20110502, end: 20110823
  55. SIMETHICONE [Concomitant]
     Dosage: 20 ML, QD
     Route: 048
     Dates: start: 20110214, end: 20110214
  56. MEK INHIBITOR (DIHYDROXYPROP-DIFLU-METHOXYPHEN-CYCLOPROPA-SULFAMI) [Suspect]
     Dosage: 30 MG, BID
     Dates: start: 20110228, end: 20110306
  57. MEK INHIBITOR (DIHYDROXYPROP-DIFLU-METHOXYPHEN-CYCLOPROPA-SULFAMI) [Suspect]
     Dosage: 30 MG, BID
     Route: 048
     Dates: start: 20110615, end: 20110705
  58. MEK INHIBITOR (DIHYDROXYPROP-DIFLU-METHOXYPHEN-CYCLOPROPA-SULFAMI) [Suspect]
     Dosage: 30 MG, QD
     Route: 048
     Dates: start: 20110725, end: 20110725
  59. SORAFENIB (RAF KINASE INHIBITOR) [Suspect]
     Dosage: 400 MG, QD
     Route: 048
     Dates: start: 20110228, end: 20110306
  60. CARVEDILOL [Concomitant]
     Indication: HYPERTENSION
     Dosage: 25 MG, QD
     Route: 048
     Dates: start: 20100616, end: 20110213
  61. NEURONTIN [Concomitant]
     Indication: PERIPHERAL SENSORY NEUROPATHY
     Dosage: 300 MG, TID
     Route: 048
     Dates: start: 20101115, end: 20110213
  62. PHENIRAMINE [Concomitant]
     Dosage: UNK
     Route: 048
     Dates: start: 20110217
  63. LASIX [Concomitant]
     Indication: PROPHYLAXIS
     Dosage: 20 MG, QD
     Route: 042
     Dates: start: 20110215, end: 20110215
  64. K40NS500 INJ [Concomitant]
     Indication: MEDICAL DIET
     Dosage: 500 ML, QD
     Route: 042
     Dates: start: 20110216, end: 20110217
  65. MAGNESIUM OXIDE [Concomitant]
     Dosage: 500 MG, TID
     Route: 048
     Dates: start: 20110706, end: 20110823
  66. MEK INHIBITOR (DIHYDROXYPROP-DIFLU-METHOXYPHEN-CYCLOPROPA-SULFAMI) [Suspect]
     Dosage: 30 MG, BID
     Route: 048
     Dates: start: 20110315, end: 20110320
  67. SORAFENIB (RAF KINASE INHIBITOR) [Suspect]
     Dosage: 400 MG, QOD
     Route: 048
     Dates: start: 20110526, end: 20110613
  68. CARVEDILOL [Concomitant]
     Dosage: 25 MG, QD
     Route: 048
     Dates: start: 20110415, end: 20110428
  69. ADELAVIN [Concomitant]
     Dosage: 2 ML, QD
     Route: 042
     Dates: start: 20110430, end: 20110504
  70. PHENIRAMINE [Concomitant]
  71. L-CARNITINE [Concomitant]
     Dosage: 1 C TID
     Route: 048
     Dates: start: 20110502, end: 20110823
  72. TC-99M-RBC [Concomitant]
     Dosage: 1 BOTTLE QD
     Route: 042
     Dates: start: 20110323, end: 20110323
  73. SIMETHICONE [Concomitant]
     Dosage: 20 ML, QD
     Route: 048
     Dates: start: 20110725, end: 20110725
  74. MEK INHIBITOR (DIHYDROXYPROP-DIFLU-METHOXYPHEN-CYCLOPROPA-SULFAMI) [Suspect]
     Dosage: 30 MG, QD
     Route: 048
     Dates: start: 20110314, end: 20110314
  75. MEK INHIBITOR (DIHYDROXYPROP-DIFLU-METHOXYPHEN-CYCLOPROPA-SULFAMI) [Suspect]
     Dosage: 30 MG, QD
     Route: 048
     Dates: start: 20110428, end: 20110428
  76. SORAFENIB (RAF KINASE INHIBITOR) [Suspect]
     Dosage: 400 MG, QOD
     Route: 048
     Dates: start: 20110615, end: 20110706
  77. LANSOPRAZOLE [Concomitant]
     Indication: GASTROOESOPHAGEAL REFLUX DISEASE
     Dosage: 30 MG, QD
     Route: 048
     Dates: start: 20100714, end: 20110213
  78. PHENIRAMINE [Concomitant]
     Dosage: 150000 U, UNK
     Dates: start: 20110215, end: 20110220
  79. CLINIMIX N9G15E [Concomitant]
     Dosage: 1500 ML, QD
     Route: 042
     Dates: start: 20110429, end: 20110430
  80. CLINIMIX N9G15E [Concomitant]
     Dosage: 1.5 L QD
     Route: 042
     Dates: start: 20110502, end: 20110503
  81. MUCOSTIN [Concomitant]
     Dosage: 600 MG, BID
     Route: 042
     Dates: start: 20110214, end: 20110216
  82. LANSTON [Concomitant]
     Indication: UPPER GASTROINTESTINAL HAEMORRHAGE
     Dosage: 15 ML, QD
     Route: 048
     Dates: start: 20110217, end: 20110428
  83. SIMETHICONE [Concomitant]
     Dosage: 20 ML, QD
     Route: 048
     Dates: start: 20110429, end: 20110429
  84. HEPASOL [Concomitant]
     Dosage: 25 MG, QD
     Route: 042
     Dates: start: 20110210, end: 20110210

REACTIONS (3)
  - UPPER GASTROINTESTINAL HAEMORRHAGE [None]
  - DUODENAL ULCER [None]
  - CEREBRAL HAEMORRHAGE [None]
